FAERS Safety Report 19781921 (Version 1)
Quarter: 2021Q3

REPORT INFORMATION
  Report Type: Spontaneous
  Country: US (occurrence: US)
  Receive Date: 20210902
  Receipt Date: 20210902
  Transmission Date: 20211014
  Serious: Yes (Hospitalization)
  Sender: FDA-Public Use
  Company Number: US-ENDO PHARMACEUTICALS INC-2021-004565

PATIENT
  Sex: Male

DRUGS (3)
  1. COLCHICINE. [Concomitant]
     Active Substance: COLCHICINE
     Indication: GOUT
     Dosage: UNK UNKNOWN, UNKNOWN
     Route: 065
     Dates: start: 2021
  2. VYNDAMAX [Concomitant]
     Active Substance: TAFAMIDIS
     Indication: AMYLOIDOSIS
     Dosage: UNK UNKNOWN, DAILY
     Route: 048
     Dates: start: 202011
  3. PREDNISONE. [Suspect]
     Active Substance: PREDNISONE
     Indication: GOUT
     Dosage: UNK UNKNOWN, UNK
     Route: 065
     Dates: start: 202103

REACTIONS (1)
  - Confusional state [Recovered/Resolved]

NARRATIVE: CASE EVENT DATE: 202104
